FAERS Safety Report 13486183 (Version 1)
Quarter: 2017Q2

REPORT INFORMATION
  Report Type: Spontaneous
  Country: US (occurrence: DE)
  Receive Date: 20170426
  Receipt Date: 20170426
  Transmission Date: 20170830
  Serious: Yes (Other)
  Sender: FDA-Public Use
  Company Number: US-NOVAST LABORATORIES, LTD-DE-2017NOV000026

PATIENT

DRUGS (4)
  1. NIFEDIPINE. [Suspect]
     Active Substance: NIFEDIPINE
     Indication: HYPERTENSION
     Dosage: UNK
  2. LISINOPRIL. [Suspect]
     Active Substance: LISINOPRIL
     Indication: HYPERTENSION
     Dosage: UNK
  3. ISONIAZID. [Suspect]
     Active Substance: ISONIAZID
     Indication: TUBERCULOSIS
     Dosage: 15 MG/KG (900 MG MAX), UNK
  4. RIFAPENTINE [Suspect]
     Active Substance: RIFAPENTINE
     Indication: TUBERCULOSIS
     Dosage: 900 MG, WEEKLY

REACTIONS (3)
  - Hypertension [Unknown]
  - Drug interaction [Unknown]
  - Anaemia [Unknown]
